FAERS Safety Report 19983407 (Version 3)
Quarter: 2023Q2

REPORT INFORMATION
  Report Type: Report from Study
  Country: JP (occurrence: JP)
  Receive Date: 20211021
  Receipt Date: 20230512
  Transmission Date: 20230722
  Serious: Yes (Other)
  Sender: FDA-Public Use
  Company Number: JP-MLMSERVICE-20211008-3156991-1

PATIENT
  Age: 5 Decade
  Sex: Male

DRUGS (3)
  1. BEVACIZUMAB [Suspect]
     Active Substance: BEVACIZUMAB
     Indication: Colorectal cancer stage IV
     Dosage: 7.5 MG/ KG, EVERY 3 WEEKS (12 CYCLIC)
  2. OXALIPLATIN [Suspect]
     Active Substance: OXALIPLATIN
     Indication: Colorectal cancer stage IV
     Dosage: 130 MG/M2 ON DAY 1 (12 CYCLIC)
  3. CAPECITABINE [Suspect]
     Active Substance: CAPECITABINE
     Indication: Colorectal cancer stage IV
     Dosage: 1,000 MG/M2 TWICE DAILY ON DAYS 1 - 14, EVERY 3 WEEKS (12 CYCLIC)

REACTIONS (1)
  - Hypertriglyceridaemia [Recovering/Resolving]
